FAERS Safety Report 9338298 (Version 1)
Quarter: 2013Q2

REPORT INFORMATION
  Report Type: Spontaneous
  Country: US (occurrence: None)
  Receive Date: 20130605
  Receipt Date: 20130605
  Transmission Date: 20140414
  Serious: Yes (Hospitalization)
  Sender: FDA-Public Use
  Company Number: None

PATIENT
  Age: 78 Year
  Sex: Male
  Weight: 64.4 kg

DRUGS (25)
  1. CARBOPLATIN [Suspect]
  2. PACLITAXEL (TAXOL) [Suspect]
  3. AMOXICILLIN [Concomitant]
  4. CIPROFLOXACIN [Concomitant]
  5. CLINDAMYCIN TOPICAL [Concomitant]
  6. DEXAMETHASONE [Concomitant]
  7. DILAUDID [Concomitant]
  8. DILTIAZEM [Concomitant]
  9. DIPHENHYDRAMINE [Concomitant]
  10. DOXICYCLINE [Concomitant]
  11. ERTAPENEM [Concomitant]
  12. FAMOTODINE [Concomitant]
  13. FLAGYL [Concomitant]
  14. GABAPENTIN [Concomitant]
  15. LORAZEPAM [Concomitant]
  16. LOVENOX [Concomitant]
  17. MAGNESIUM OXIDE [Concomitant]
  18. MAGNESIUM SULFATE [Concomitant]
  19. MULTIVITAMIN [Concomitant]
  20. ONDANSETRON [Concomitant]
  21. PHENERGAN [Concomitant]
  22. PROTONIX [Concomitant]
  23. RANITIDINE [Concomitant]
  24. TRAZODONE [Concomitant]
  25. ZOFRAN [Concomitant]

REACTIONS (2)
  - Neutropenic colitis [None]
  - Intestinal perforation [None]
